FAERS Safety Report 5150889-6 (Version None)
Quarter: 2006Q4

REPORT INFORMATION
  Report Type: 
  Country: None (occurrence: None)
  Receive Date: 20061114
  Receipt Date: 20061102
  Transmission Date: 20070319
  Serious: Yes (Other)
  Sender: FDA-Public Use
  Company Number: US-ELI_LILLY_AND_COMPANY-US200611000913

PATIENT
  Age: 11 Year
  Sex: Female

DRUGS (1)
  1. HUMATROPE [Suspect]
     Indication: TURNER'S SYNDROME
     Dosage: 2 MG, DAILY (1/D)
     Dates: start: 20020606

REACTIONS (1)
  - PAPILLOEDEMA [None]
